FAERS Safety Report 25591366 (Version 2)
Quarter: 2025Q3

REPORT INFORMATION
  Report Type: Spontaneous
  Country: BR (occurrence: BR)
  Receive Date: 20250722
  Receipt Date: 20250909
  Transmission Date: 20251020
  Serious: Yes (Other)
  Sender: IPSEN BIOPHARMACEUTICALS, INC.
  Company Number: BR-IPSEN Group, Research and Development-2025-14608

PATIENT

DRUGS (1)
  1. LANREOTIDE ACETATE [Suspect]
     Active Substance: LANREOTIDE ACETATE
     Indication: Acromegaly
     Dosage: 120 MG, SUBCUTANEOUS ADMINISTRATION IN THE RIGHT BUTTOCK.
     Route: 058

REACTIONS (39)
  - Deafness unilateral [Recovered/Resolved]
  - Syncope [Recovered/Resolved]
  - Dysentery [Recovered/Resolved]
  - Nephrolithiasis [Recovered/Resolved]
  - Injection site pain [Recovered/Resolved]
  - Injection site extravasation [Recovered/Resolved]
  - Medical device site discomfort [Recovering/Resolving]
  - Injection site nodule [Recovered/Resolved]
  - Blood growth hormone increased [Recovered/Resolved]
  - Deformity [Unknown]
  - Arthralgia [Recovered/Resolved]
  - Swelling [Recovered/Resolved]
  - Tendonitis [Recovered/Resolved]
  - Blood growth hormone abnormal [Unknown]
  - Diarrhoea [Recovered/Resolved]
  - Hypotension [Recovered/Resolved]
  - Hyperhidrosis [Recovered/Resolved]
  - Back pain [Recovered/Resolved]
  - Vomiting [Recovered/Resolved]
  - Nausea [Recovered/Resolved]
  - Abdominal pain [Recovered/Resolved]
  - Bone hypertrophy [Recovered/Resolved]
  - Somnolence [Recovered/Resolved]
  - Intervertebral disc protrusion [Recovering/Resolving]
  - Fatigue [Recovered/Resolved]
  - Blood pressure fluctuation [Unknown]
  - Nausea [Recovered/Resolved]
  - Product dose omission issue [Unknown]
  - Dizziness [Recovered/Resolved]
  - Heart rate increased [Recovered/Resolved]
  - Polyuria [Recovered/Resolved]
  - Post-traumatic headache [Unknown]
  - Fall [Recovered/Resolved]
  - Dizziness [Recovered/Resolved]
  - Headache [Recovered/Resolved]
  - Back pain [Unknown]
  - Spinal column injury [Not Recovered/Not Resolved]
  - Bone erosion [Not Recovered/Not Resolved]
  - Stress [Unknown]

NARRATIVE: CASE EVENT DATE: 20160101
